FAERS Safety Report 4923467-9 (Version None)
Quarter: 2006Q1

REPORT INFORMATION
  Report Type: 
  Country: None (occurrence: None)
  Receive Date: 20060221
  Receipt Date: 20060207
  Transmission Date: 20060701
  Serious: Yes (Hospitalization, Disabling)
  Sender: FDA-Public Use
  Company Number: 2006018681

PATIENT
  Sex: Male
  Weight: 117.9352 kg

DRUGS (6)
  1. ZOLOFT [Suspect]
     Indication: ANXIETY
     Dosage: 200 MG
  2. ZOLOFT [Suspect]
     Indication: PANIC ATTACK
     Dosage: 200 MG
  3. XANAX [Suspect]
     Indication: ANXIETY
     Dates: start: 19910101
  4. XANAX [Suspect]
     Indication: PANIC ATTACK
     Dates: start: 19910101
  5. ALL OTHER THERAPEUTIC PRODUCTS [Concomitant]
  6. DRUG USED IN DIABETES [Concomitant]

REACTIONS (10)
  - BACK INJURY [None]
  - DRUG INEFFECTIVE [None]
  - DRUG TOLERANCE [None]
  - DRUG WITHDRAWAL SYNDROME [None]
  - ECONOMIC PROBLEM [None]
  - FEELING ABNORMAL [None]
  - HYPERHIDROSIS [None]
  - OSTEOARTHRITIS [None]
  - TREATMENT NONCOMPLIANCE [None]
  - TREMOR [None]
